FAERS Safety Report 6368557-1 (Version None)
Quarter: 2009Q3

REPORT INFORMATION
  Report Type: 
  Country: None (occurrence: None)
  Receive Date: 20090922
  Receipt Date: 20090224
  Transmission Date: 20100115
  Serious: No
  Sender: FDA-Public Use
  Company Number: US-BRISTOL-MYERS SQUIBB COMPANY-14329841

PATIENT
  Sex: Female

DRUGS (5)
  1. ORENCIA [Suspect]
     Indication: RHEUMATOID ARTHRITIS
     Dosage: LAST DOSE ON 28AUG08
     Route: 042
     Dates: start: 20070701
  2. BUSPAR [Suspect]
  3. ATENOLOL [Suspect]
  4. OXYCODONE [Suspect]
  5. MOBIC [Suspect]

REACTIONS (2)
  - OROPHARYNGEAL BLISTERING [None]
  - STOMATITIS [None]
